FAERS Safety Report 12806008 (Version 1)
Quarter: 2016Q4

REPORT INFORMATION
  Report Type: Spontaneous
  Country: US (occurrence: US)
  Receive Date: 20161003
  Receipt Date: 20161003
  Transmission Date: 20170207
  Serious: Yes (Other)
  Sender: FDA-Public Use
  Company Number: None

PATIENT
  Age: 54 Year
  Sex: Male

DRUGS (11)
  1. REVLIMID [Concomitant]
     Active Substance: LENALIDOMIDE
  2. VITAMIN D [Concomitant]
     Active Substance: CHOLECALCIFEROL
  3. ZOCOR [Concomitant]
     Active Substance: SIMVASTATIN
  4. COQ10 [Concomitant]
     Active Substance: UBIDECARENONE
  5. NINLARO [Suspect]
     Active Substance: IXAZOMIB
     Indication: PLASMA CELL MYELOMA
     Dosage: 1 CAPSULE 1XWK, 3WK ON-1WK OFF
     Route: 048
     Dates: start: 20160723
  6. CLONAZEPAM. [Concomitant]
     Active Substance: CLONAZEPAM
  7. TRAMADOL. [Concomitant]
     Active Substance: TRAMADOL
  8. ASPIRIN. [Concomitant]
     Active Substance: ASPIRIN
  9. VITAMIN C [Concomitant]
     Active Substance: ASCORBIC ACID
  10. LEXAPRO [Concomitant]
     Active Substance: ESCITALOPRAM OXALATE
  11. MULTI VITAMIN [Concomitant]
     Active Substance: VITAMINS

REACTIONS (6)
  - Insomnia [None]
  - Ageusia [None]
  - Epistaxis [None]
  - Gastric haemorrhage [None]
  - Muscular weakness [None]
  - Decreased appetite [None]
